FAERS Safety Report 18928505 (Version 2)
Quarter: 2021Q1

REPORT INFORMATION
  Report Type: Report from Study
  Country: CA (occurrence: CA)
  Receive Date: 20210223
  Receipt Date: 20210303
  Transmission Date: 20210420
  Serious: Yes (Other)
  Sender: FDA-Public Use
  Company Number: CA-PFIZER INC-2021160528

PATIENT
  Age: 88 Year
  Sex: Female

DRUGS (5)
  1. PREGABALIN. [Suspect]
     Active Substance: PREGABALIN
     Indication: TRIGEMINAL NEURALGIA
     Dosage: 300 MG, 2X/DAY
  2. CARBAMAZEPINE. [Suspect]
     Active Substance: CARBAMAZEPINE
     Indication: TRIGEMINAL NEURALGIA
     Dosage: UNK
  3. CODEINE [Suspect]
     Active Substance: CODEINE
     Indication: TRIGEMINAL NEURALGIA
     Dosage: UNK
  4. RIVASTIGMINE. [Concomitant]
     Active Substance: RIVASTIGMINE
     Dosage: UNK
  5. GABAPENTIN. [Concomitant]
     Active Substance: GABAPENTIN
     Dosage: UNK

REACTIONS (3)
  - Cognitive disorder [Recovering/Resolving]
  - Dementia [Recovering/Resolving]
  - Incorrect dose administered [Recovering/Resolving]
